FAERS Safety Report 14342736 (Version 2)
Quarter: 2018Q1

REPORT INFORMATION
  Report Type: Report from Study
  Country: US (occurrence: US)
  Receive Date: 20180102
  Receipt Date: 20180115
  Transmission Date: 20180509
  Serious: Yes (Other)
  Sender: FDA-Public Use
  Company Number: US-UCBSA-2017053022

PATIENT
  Age: 49 Year
  Sex: Male

DRUGS (1)
  1. LEVETIRACETAM. [Suspect]
     Active Substance: LEVETIRACETAM
     Indication: EPILEPSY
     Dosage: 1000 MG, 2X/DAY (BID)

REACTIONS (1)
  - Seizure [Not Recovered/Not Resolved]

NARRATIVE: CASE EVENT DATE: 20171226
